FAERS Safety Report 5311731-3 (Version None)
Quarter: 2007Q2

REPORT INFORMATION
  Report Type: 
  Country: None (occurrence: None)
  Receive Date: 20070426
  Receipt Date: 20070426
  Transmission Date: 20071010
  Serious: Yes (Hospitalization)
  Sender: FDA-Public Use
  Company Number: None

PATIENT
  Age: 49 Year
  Sex: Female
  Weight: 72.5755 kg

DRUGS (2)
  1. HYDROXYZINE HYDROCHLORIDE [Suspect]
     Indication: PAIN
     Dosage: 50 MG  EVERY 6 HOURS  PO
     Route: 048
     Dates: start: 20070226, end: 20070301
  2. HYDROXYZINE HYDROCHLORIDE [Suspect]
     Indication: PRURITUS
     Dosage: 50 MG  EVERY 6 HOURS  PO
     Route: 048
     Dates: start: 20070226, end: 20070301

REACTIONS (6)
  - DIZZINESS [None]
  - DRUG ADMINISTRATION ERROR [None]
  - FATIGUE [None]
  - MEDICATION ERROR [None]
  - NERVOUS SYSTEM DISORDER [None]
  - SOMNOLENCE [None]
